FAERS Safety Report 16372084 (Version 3)
Quarter: 2019Q4

REPORT INFORMATION
  Report Type: Report from Study
  Country: US (occurrence: US)
  Receive Date: 20190530
  Receipt Date: 20191115
  Transmission Date: 20200122
  Serious: Yes (Hospitalization, Other)
  Sender: FDA-Public Use
  Company Number: US-JNJFOC-20190426673

PATIENT
  Sex: Female

DRUGS (3)
  1. ALBUTEROL. [Concomitant]
     Active Substance: ALBUTEROL
  2. IMBRUVICA [Suspect]
     Active Substance: IBRUTINIB
     Indication: CHRONIC LYMPHOCYTIC LEUKAEMIA
  3. IMBRUVICA [Suspect]
     Active Substance: IBRUTINIB
     Indication: WALDENSTROM^S MACROGLOBULINAEMIA
     Dosage: 420 MG, QD
     Route: 048
     Dates: start: 20180615

REACTIONS (13)
  - Dysstasia [Unknown]
  - Fatigue [Not Recovered/Not Resolved]
  - Depression [Recovering/Resolving]
  - White blood cell count decreased [Unknown]
  - Urinary incontinence [Not Recovered/Not Resolved]
  - Renal disorder [Not Recovered/Not Resolved]
  - Adverse event [Unknown]
  - Osteoporosis [Not Recovered/Not Resolved]
  - Large intestine polyp [Not Recovered/Not Resolved]
  - Cancer fatigue [Unknown]
  - Anxiety [Not Recovered/Not Resolved]
  - Pneumonia [Recovered/Resolved]
  - Bone pain [Not Recovered/Not Resolved]
